FAERS Safety Report 6836169-9 (Version None)
Quarter: 2010Q3

REPORT INFORMATION
  Report Type: 
  Country: None (occurrence: None)
  Receive Date: 20100713
  Receipt Date: 20100708
  Transmission Date: 20110219
  Serious: Yes (Death)
  Sender: FDA-Public Use
  Company Number: GB-SANOFI-AVENTIS-2010SA039949

PATIENT
  Age: 86 Year
  Sex: Female

DRUGS (2)
  1. LANTUS [Suspect]
     Route: 058
  2. DOXYCYCLINE [Suspect]
     Indication: INFECTION

REACTIONS (3)
  - DEATH [None]
  - DRUG INTERACTION [None]
  - HYPOGLYCAEMIA [None]
